FAERS Safety Report 5233799-5 (Version None)
Quarter: 2007Q1

REPORT INFORMATION
  Report Type: 
  Country: None (occurrence: None)
  Receive Date: 20061208
  Receipt Date: 20060223
  Transmission Date: 20070707
  Serious: Yes (Other)
  Sender: FDA-Public Use
  Company Number: 2006UW03118

PATIENT
  Age: 73 Year
  Sex: Male
  Weight: 66.678 kg

DRUGS (4)
  1. CRESTOR [Suspect]
     Indication: HYPERCHOLESTEROLAEMIA
     Dosage: 5 MG PO
     Route: 048
     Dates: start: 20060222
  2. ATACAND [Concomitant]
  3. KLONOPIN [Concomitant]
  4. SERAX [Concomitant]

REACTIONS (4)
  - AGITATION [None]
  - BALANCE DISORDER [None]
  - DIZZINESS [None]
  - ENERGY INCREASED [None]
